FAERS Safety Report 26214816 (Version 1)
Quarter: 2025Q4

REPORT INFORMATION
  Report Type: Spontaneous
  Country: EU (occurrence: EU)
  Receive Date: 20251230
  Receipt Date: 20251230
  Transmission Date: 20260118
  Serious: Yes (Hospitalization, Other)
  Sender: ELI LILLY AND COMPANY
  Company Number: None

PATIENT
  Age: 47 Year
  Sex: Male
  Weight: 145 kg

DRUGS (9)
  1. MOUNJARO [Suspect]
     Active Substance: TIRZEPATIDE
     Indication: Weight control
     Dosage: 15 MG, WEEKLY (1/W)
     Route: 058
     Dates: start: 20251022
  2. DAPAGLIFLOZIN [Concomitant]
     Active Substance: DAPAGLIFLOZIN
     Indication: Type 2 diabetes mellitus
     Dosage: 10 MG, UNKNOWN
     Route: 048
     Dates: start: 20230712
  3. ACETAMINOPHEN [Concomitant]
     Active Substance: ACETAMINOPHEN
     Indication: Back pain
     Dosage: 1000 MG, UNKNOWN
     Route: 048
     Dates: start: 20250702
  4. BISOPROLOL [Concomitant]
     Active Substance: BISOPROLOL
     Indication: Cardiac disorder
     Dosage: 10 MG, UNKNOWN
     Route: 048
     Dates: start: 20111022
  5. AMLODIPINE BESYLATE [Concomitant]
     Active Substance: AMLODIPINE BESYLATE
     Indication: Hypertension
     Dosage: 10 MG, UNKNOWN
     Route: 048
     Dates: start: 20251022
  6. OLMESARTAN MEDOXOMIL [Concomitant]
     Active Substance: OLMESARTAN MEDOXOMIL
     Indication: Hypertension
     Dosage: 40 MG, UNKNOWN
     Route: 048
     Dates: start: 20251023
  7. TADALAFIL [Concomitant]
     Active Substance: TADALAFIL
     Indication: Organic erectile dysfunction
     Dosage: 40 MG, UNKNOWN
     Route: 048
     Dates: start: 20241108
  8. DALINGO [Concomitant]
     Indication: Intervertebral disc displacement
     Dosage: 82.5 MG, UNKNOWN
     Route: 048
     Dates: start: 20251006
  9. CRESTOR [Concomitant]
     Active Substance: ROSUVASTATIN CALCIUM
     Indication: Type 2 diabetes mellitus
     Dosage: 20 MG, UNKNOWN
     Route: 048
     Dates: start: 20250318

REACTIONS (1)
  - Renal infarct [Recovering/Resolving]

NARRATIVE: CASE EVENT DATE: 20251125
